FAERS Safety Report 16529885 (Version 3)
Quarter: 2021Q1

REPORT INFORMATION
  Report Type: Spontaneous
  Country: AT (occurrence: AT)
  Receive Date: 20190704
  Receipt Date: 20210322
  Transmission Date: 20210419
  Serious: Yes (Hospitalization)
  Sender: FDA-Public Use
  Company Number: AT-AMGEN-AUTNI2019003999

PATIENT
  Age: 78 Year
  Sex: Female
  Weight: 58 kg

DRUGS (21)
  1. LETROZOLE. [Suspect]
     Active Substance: LETROZOLE
     Indication: HER2 POSITIVE BREAST CANCER
     Dosage: 2.5 MILLIGRAM
     Route: 048
     Dates: start: 20181029
  2. FEMARA [Suspect]
     Active Substance: LETROZOLE
     Indication: BREAST CANCER
     Dosage: 2.5 MILLIGRAM, QD
     Route: 048
     Dates: start: 20181029
  3. METOPROLOL. [Concomitant]
     Active Substance: METOPROLOL
     Dosage: ONGOING = CHECKED
  4. PACLITAXEL. [Suspect]
     Active Substance: PACLITAXEL
     Indication: HER2 POSITIVE BREAST CANCER
     Dosage: 129.61 MILLIGRAM
     Route: 042
     Dates: start: 20180810, end: 20180824
  5. ACEMIN [Concomitant]
     Dosage: UNK
     Route: 065
  6. PERTUZUMAB. [Suspect]
     Active Substance: PERTUZUMAB
     Indication: HER2 POSITIVE BREAST CANCER
     Dosage: MOST RECENT DOSE PRIOR TO THE EVENT: 21/SEP/2018
     Route: 042
     Dates: start: 20180810, end: 20180810
  7. PACLITAXEL. [Suspect]
     Active Substance: PACLITAXEL
     Dosage: 279.32 MILLIGRAM
     Route: 042
     Dates: start: 20180921, end: 20180921
  8. METOPROLOL. [Concomitant]
     Active Substance: METOPROLOL
     Dosage: UNK
     Route: 065
  9. VITAMINS WITH MINERALS [Concomitant]
     Active Substance: MINERALS\VITAMINS
     Dosage: ONGOING = CHECKED
     Route: 065
     Dates: start: 20181029
  10. ACEMIN [LISINOPRIL] [Concomitant]
     Active Substance: LISINOPRIL
     Dosage: ONGOING = CHECKED
  11. TRASTUZUMAB. [Suspect]
     Active Substance: TRASTUZUMAB
     Indication: HER2 POSITIVE BREAST CANCER
     Dosage: MOST RECENT DOSE PRIOR TO THE EVENT: 21/SEP/2018
     Route: 042
     Dates: start: 20180810, end: 20180810
  12. TRASTUZUMAB. [Suspect]
     Active Substance: TRASTUZUMAB
     Indication: BREAST CANCER METASTATIC
  13. THROMBO ASS [Concomitant]
     Active Substance: ASPIRIN
     Dosage: UNK
     Route: 065
     Dates: start: 20181012
  14. DEXABENE [Concomitant]
     Dosage: UNK
     Route: 065
     Dates: start: 20180810, end: 20181019
  15. DIMETINDENE MALEATE [Concomitant]
     Active Substance: DIMETHINDENE MALEATE
     Dosage: UNK
     Route: 065
  16. AMLODIPINE [Concomitant]
     Active Substance: AMLODIPINE BESYLATE
     Dosage: UNK
     Route: 065
  17. XGEVA [Suspect]
     Active Substance: DENOSUMAB
     Indication: PRODUCT USED FOR UNKNOWN INDICATION
     Dosage: UNK
     Route: 065
     Dates: start: 20181012
  18. PERTUZUMAB. [Suspect]
     Active Substance: PERTUZUMAB
     Indication: BREAST CANCER METASTATIC
  19. KYTRIL [Concomitant]
     Active Substance: GRANISETRON HYDROCHLORIDE
     Dosage: UNK
     Route: 065
     Dates: start: 20180810, end: 20181019
  20. ULSAL [Concomitant]
     Active Substance: RANITIDINE HYDROCHLORIDE
     Dosage: UNK
     Route: 065
     Dates: start: 20180810, end: 20181019
  21. FENAKUT [Concomitant]
     Dosage: UNK
     Route: 065
     Dates: start: 20180810, end: 20181019

REACTIONS (7)
  - Fatigue [Recovered/Resolved]
  - Lymphoedema [Recovered/Resolved]
  - Anaemia [Recovered/Resolved]
  - Off label use [Unknown]
  - Epistaxis [Recovered/Resolved]
  - Oedema peripheral [Recovered/Resolved]
  - Nausea [Recovered/Resolved]

NARRATIVE: CASE EVENT DATE: 20180810
